FAERS Safety Report 22100315 (Version 2)
Quarter: 2024Q1

REPORT INFORMATION
  Report Type: Report from Study
  Country: US (occurrence: US)
  Receive Date: 20230315
  Receipt Date: 20240108
  Transmission Date: 20240410
  Serious: Yes (Other)
  Sender: FDA-Public Use
  Company Number: US-AMGEN-USASP2023046045

PATIENT
  Sex: Male

DRUGS (2)
  1. OTEZLA [Suspect]
     Active Substance: APREMILAST
     Indication: Psoriasis
     Dosage: 30 MILLIGRAM, BID
     Route: 048
     Dates: start: 20210918
  2. OTEZLA [Suspect]
     Active Substance: APREMILAST
     Indication: Psoriasis

REACTIONS (3)
  - Nephrolithiasis [Unknown]
  - Drug ineffective [Unknown]
  - Gastroenteritis viral [Unknown]
